FAERS Safety Report 15335304 (Version 1)
Quarter: 2018Q3

REPORT INFORMATION
  Report Type: Spontaneous
  Country: FR (occurrence: FR)
  Receive Date: 20180830
  Receipt Date: 20180830
  Transmission Date: 20181010
  Serious: Yes (Hospitalization)
  Sender: FDA-Public Use
  Company Number: PHHY2018FR080602

PATIENT
  Age: 31 Year
  Sex: Female

DRUGS (5)
  1. DAFALGAN [Suspect]
     Active Substance: ACETAMINOPHEN
     Indication: TOXICITY TO VARIOUS AGENTS
     Dosage: 8 G, UNK
     Route: 048
  2. ESCITALOPRAM [Suspect]
     Active Substance: ESCITALOPRAM OXALATE
     Indication: TOXICITY TO VARIOUS AGENTS
     Dosage: 28 DF, UNK
     Route: 048
  3. IBUPROFEN. [Suspect]
     Active Substance: IBUPROFEN
     Indication: TOXICITY TO VARIOUS AGENTS
     Dosage: 20 DF, UNK
     Route: 048
  4. PAROXETIN [Suspect]
     Active Substance: PAROXETINE HYDROCHLORIDE
     Indication: TOXICITY TO VARIOUS AGENTS
     Dosage: 12 DF, UNK
     Route: 048
  5. HAVLANE [Suspect]
     Active Substance: LOPRAZOLAM
     Indication: TOXICITY TO VARIOUS AGENTS
     Dosage: 20 DF, UNK
     Route: 048

REACTIONS (2)
  - Disorientation [Recovered/Resolved]
  - Somnolence [Recovered/Resolved]

NARRATIVE: CASE EVENT DATE: 20180628
